FAERS Safety Report 15525393 (Version 3)
Quarter: 2018Q4

REPORT INFORMATION
  Report Type: Report from Study
  Country: US (occurrence: US)
  Receive Date: 20181019
  Receipt Date: 20181126
  Transmission Date: 20190205
  Serious: Yes (Other)
  Sender: FDA-Public Use
  Company Number: US-TEVA-2018-US-964511

PATIENT
  Age: 53 Year
  Sex: Female

DRUGS (10)
  1. PAROXETINE. [Concomitant]
     Active Substance: PAROXETINE
  2. BUPROPRION [Concomitant]
     Active Substance: BUPROPION
  3. VITAMIN D [Concomitant]
     Active Substance: CHOLECALCIFEROL
  4. PAXIL [Concomitant]
     Active Substance: PAROXETINE HYDROCHLORIDE
  5. HYDROMORPHONE [Concomitant]
     Active Substance: HYDROMORPHONE
  6. LYRICA [Concomitant]
     Active Substance: PREGABALIN
  7. CLONIDINE. [Concomitant]
     Active Substance: CLONIDINE
  8. COPAXONE [Suspect]
     Active Substance: GLATIRAMER ACETATE
     Indication: MULTIPLE SCLEROSIS
     Route: 058
     Dates: start: 20180920, end: 20180929
  9. CARISOPRODOL. [Concomitant]
     Active Substance: CARISOPRODOL
  10. ZOLPIDEM [Concomitant]
     Active Substance: ZOLPIDEM\ZOLPIDEM TARTRATE

REACTIONS (9)
  - Mouth swelling [Recovered/Resolved]
  - Dyspnoea [Unknown]
  - Syncope [Unknown]
  - Urticaria [Recovered/Resolved]
  - Pharyngeal oedema [Unknown]
  - Therapy change [Unknown]
  - Anaphylactic reaction [Unknown]
  - Respiratory tract oedema [Unknown]
  - Throat tightness [Unknown]

NARRATIVE: CASE EVENT DATE: 20180930
